FAERS Safety Report 9538411 (Version 1)
Quarter: 2013Q3

REPORT INFORMATION
  Report Type: Spontaneous
  Country: US (occurrence: US)
  Receive Date: 20130920
  Receipt Date: 20130920
  Transmission Date: 20140515
  Serious: No
  Sender: FDA-Public Use
  Company Number: US-PFIZER INC-2013267607

PATIENT
  Age: 71 Year
  Sex: Female
  Weight: 62.59 kg

DRUGS (5)
  1. TIKOSYN [Suspect]
     Indication: ATRIAL FIBRILLATION
     Dosage: 125 UG, 1X/DAY
     Route: 048
     Dates: start: 201301
  2. PRADAXA [Concomitant]
     Dosage: UNK
  3. ZOCOR [Concomitant]
     Dosage: UNK
  4. SYNTHROID [Concomitant]
     Dosage: UNK
  5. PREMARIN [Concomitant]
     Dosage: UNK

REACTIONS (4)
  - Hyperhidrosis [Unknown]
  - Dizziness [Unknown]
  - Diarrhoea [Unknown]
  - Drug administration error [Unknown]
